FAERS Safety Report 8215574-2 (Version None)
Quarter: 2012Q1

REPORT INFORMATION
  Report Type: 
  Country: None (occurrence: None)
  Receive Date: 20120316
  Receipt Date: 20120301
  Transmission Date: 20120608
  Serious: Yes (Other)
  Sender: FDA-Public Use
  Company Number: PT-ROCHE-1045735

PATIENT
  Age: 60 Year
  Sex: Female

DRUGS (2)
  1. SULFAMETHOXAZOLE AND TRIMETHOPRIM [Suspect]
     Indication: WHIPPLE'S DISEASE
     Route: 048
  2. CEFTRIAXONE [Suspect]
     Indication: WHIPPLE'S DISEASE
     Route: 042

REACTIONS (3)
  - ABNORMAL BEHAVIOUR [None]
  - DISINHIBITION [None]
  - AKATHISIA [None]
